FAERS Safety Report 4590016-7 (Version None)
Quarter: 2005Q1

REPORT INFORMATION
  Report Type: 
  Country: None (occurrence: None)
  Receive Date: 20050218
  Receipt Date: 20050218
  Transmission Date: 20050727
  Serious: Yes (Life-Threatening)
  Sender: FDA-Public Use
  Company Number: None

PATIENT
  Sex: Female
  Weight: 89.3586 kg

DRUGS (2)
  1. NEULASTA [Suspect]
     Indication: BREAST CANCER
     Dosage: 6 MG  EVERY 2 WEEKS SUBCUTANEOUS
     Route: 058
     Dates: start: 20050215, end: 20050215
  2. PHENOBARBITAL [Concomitant]

REACTIONS (3)
  - FLUSHING [None]
  - RASH [None]
  - THROAT IRRITATION [None]
